FAERS Safety Report 8795882 (Version 1)
Quarter: 2012Q4

REPORT INFORMATION
  Report Type: 
  Country: US (occurrence: US)
  Receive Date: 20120920
  Receipt Date: 20120920
  Transmission Date: 20130627
  Serious: Yes (Other)
  Sender: FDA-Public Use
  Company Number: US-009507513-1209USA003392

PATIENT
  Sex: Female

DRUGS (5)
  1. ISENTRESS [Suspect]
     Dosage: 400 mg, qd
     Route: 048
  2. WELLBUTRIN [Suspect]
     Dosage: 300 mg, qd
     Route: 048
  3. TRAZODONE HYDROCHLORIDE [Suspect]
     Dosage: 100 mg, qd
     Route: 048
  4. REYATAZ [Suspect]
     Dosage: 200 mg, qd
     Route: 048
  5. TRUVADA [Suspect]
     Route: 048

REACTIONS (2)
  - Abortion spontaneous [Unknown]
  - Maternal exposure during pregnancy [Unknown]
